FAERS Safety Report 18696548 (Version 1)
Quarter: 2021Q1

REPORT INFORMATION
  Report Type: Other
  Country: US (occurrence: US)
  Receive Date: 20210104
  Receipt Date: 20210104
  Transmission Date: 20210419
  Serious: No
  Sender: FDA-Public Use
  Company Number: US-ROCHE-2582782

PATIENT
  Age: 59 Year
  Sex: Female

DRUGS (5)
  1. ALTEPLASE. [Suspect]
     Active Substance: ALTEPLASE
     Indication: CORONAVIRUS INFECTION
     Dosage: OVER 2 HOURS
     Route: 040
  2. HYDROXYCHLOROQUINE [Concomitant]
     Active Substance: HYDROXYCHLOROQUINE
  3. AZITHROMYCIN ANHYDROUS. [Concomitant]
     Active Substance: AZITHROMYCIN ANHYDROUS
  4. ALTEPLASE. [Suspect]
     Active Substance: ALTEPLASE
     Dosage: OVER THE SUBSEQUENT 22 HOURS
     Route: 042
  5. HEPARIN [Concomitant]
     Active Substance: HEPARIN SODIUM

REACTIONS (3)
  - No adverse event [Unknown]
  - Intentional product use issue [Unknown]
  - Off label use [Unknown]
